FAERS Safety Report 6652436-6 (Version None)
Quarter: 2010Q1

REPORT INFORMATION
  Report Type: 
  Country: None (occurrence: None)
  Receive Date: 20100325
  Receipt Date: 20100322
  Transmission Date: 20100710
  Serious: Yes (Hospitalization, Other)
  Sender: FDA-Public Use
  Company Number: GB-MERCK-1001GBR00109

PATIENT
  Age: 58 Year
  Sex: Male

DRUGS (3)
  1. SIMVASTATIN [Suspect]
     Indication: DIABETES MELLITUS
     Route: 048
  2. CLARITHROMYCIN [Suspect]
     Indication: PNEUMONIA
     Route: 065
     Dates: start: 20090101
  3. CYCLOSPORINE [Concomitant]
     Indication: RENAL TRANSPLANT
     Route: 065
     Dates: end: 20090104

REACTIONS (2)
  - DRUG INTERACTION [None]
  - RHABDOMYOLYSIS [None]
